FAERS Safety Report 4681876-X (Version None)
Quarter: 2005Q2

REPORT INFORMATION
  Report Type: 
  Country: None (occurrence: None)
  Receive Date: 20050602
  Receipt Date: 20050526
  Transmission Date: 20051028
  Serious: Yes (Death)
  Sender: FDA-Public Use
  Company Number: 2005078349

PATIENT
  Age: 75 Year
  Sex: Female

DRUGS (14)
  1. ATORVASTATIN CALCIUM [Suspect]
     Indication: HYPERCHOLESTEROLAEMIA
     Dates: end: 20020301
  2. GLYCERYL TRINITRATE PATCH (GLYCERYL TRINITRATE) [Suspect]
     Indication: PAIN
     Dates: end: 20020301
  3. DILTIAZEM [Suspect]
     Indication: HYPERTENSION
     Dates: end: 20020301
  4. LISINOPRIL [Suspect]
     Indication: HYPERTENSION
     Dates: end: 20020301
  5. ASPIRIN [Suspect]
     Indication: PAIN
     Dates: end: 20020301
  6. LANSOPRAZOLE [Suspect]
     Indication: DUODENAL ULCER
     Dates: end: 20020301
  7. QUININE SULFATE [Suspect]
     Indication: MUSCLE SPASMS
     Dates: end: 20020301
  8. MIDAZOLAM HCL [Suspect]
     Indication: ANAESTHESIA
     Dates: end: 20020301
  9. FENTANYL [Suspect]
     Indication: ANAESTHESIA
     Dates: end: 20020301
  10. CO-CODAMOL (CODEINE PHOSPHATE, PARACETAMOL) [Concomitant]
     Indication: RHEUMATOID ARTHRITIS
     Dates: end: 20020301
  11. BUDESONIDE (BUDESONIDE) [Suspect]
     Indication: ASTHMA
     Dates: end: 20020301
  12. ARAVA [Suspect]
     Indication: RHEUMATOID ARTHRITIS
     Dosage: 20 MG
     Dates: end: 20020301
  13. PROPOFOL [Suspect]
     Indication: ANAESTHESIA
     Dates: end: 20020301
  14. PANCURONIUM [Suspect]
     Indication: MUSCLE RELAXANT THERAPY
     Dates: end: 20020301

REACTIONS (16)
  - ACTIVATED PARTIAL THROMBOPLASTIN TIME PROLONGED [None]
  - COAGULOPATHY [None]
  - GASTRIC ULCER [None]
  - GASTROINTESTINAL HAEMORRHAGE [None]
  - HAEMATEMESIS [None]
  - HAEMODIALYSIS [None]
  - HEPATIC CONGESTION [None]
  - HEPATIC FAILURE [None]
  - HEPATIC INFARCTION [None]
  - HEPATOCELLULAR DAMAGE [None]
  - HEPATORENAL SYNDROME [None]
  - HYPOVOLAEMIA [None]
  - LABILE BLOOD PRESSURE [None]
  - POST PROCEDURAL HAEMORRHAGE [None]
  - PROTHROMBIN TIME PROLONGED [None]
  - RENAL FAILURE [None]
